FAERS Safety Report 20872907 (Version 1)
Quarter: 2022Q2

REPORT INFORMATION
  Report Type: Spontaneous
  Country: FR (occurrence: FR)
  Receive Date: 20220525
  Receipt Date: 20220525
  Transmission Date: 20220721
  Serious: Yes (Hospitalization, Other)
  Sender: FDA-Public Use
  Company Number: FR-VELOXIS PHARMACEUTICALS-2022VELFR-000329

PATIENT
  Age: 33 Year
  Sex: Male
  Weight: 53 kg

DRUGS (9)
  1. TACROLIMUS [Suspect]
     Active Substance: TACROLIMUS
     Indication: Prophylaxis against transplant rejection
     Dosage: UNK
     Route: 065
  2. CELLCEPT [Suspect]
     Active Substance: MYCOPHENOLATE MOFETIL
     Indication: Prophylaxis against transplant rejection
     Dosage: 500 MILLIGRAM
     Route: 048
     Dates: start: 20220122
  3. AMBISOME [Suspect]
     Active Substance: AMPHOTERICIN B
     Indication: Prophylaxis against transplant rejection
     Dosage: 150 MILLIGRAM
     Route: 042
     Dates: start: 20220122
  4. VALACYCLOVIR HYDROCHLORIDE [Suspect]
     Active Substance: VALACYCLOVIR HYDROCHLORIDE
     Indication: Prophylaxis against transplant rejection
     Dosage: NR
     Route: 048
     Dates: start: 20220207
  5. MEROPENEM ANHYDROUS [Suspect]
     Active Substance: MEROPENEM ANHYDROUS
     Indication: Prophylaxis against transplant rejection
     Dosage: 6G/JR
     Route: 042
     Dates: start: 20220122, end: 20220211
  6. METHYLPREDNISOLONE [Suspect]
     Active Substance: METHYLPREDNISOLONE
     Indication: Prophylaxis against transplant rejection
     Dosage: NR
     Route: 042
     Dates: start: 20220122
  7. GANCICLOVIR [Suspect]
     Active Substance: GANCICLOVIR
     Indication: Prophylaxis against transplant rejection
     Dosage: 250 MILLIGRAM, BID
     Route: 048
     Dates: start: 20220122, end: 20220207
  8. CYCLOSPORINE [Suspect]
     Active Substance: CYCLOSPORINE
     Indication: Prophylaxis against transplant rejection
     Dosage: 100 MG/ML
     Route: 042
     Dates: start: 20220122, end: 20220203
  9. PROGRAF [Suspect]
     Active Substance: TACROLIMUS
     Indication: Prophylaxis against transplant rejection
     Dosage: 1 MILLIGRAM
     Route: 048
     Dates: start: 20220203

REACTIONS (3)
  - Cholestasis [Not Recovered/Not Resolved]
  - Hepatic cytolysis [Recovering/Resolving]
  - Off label use [Unknown]

NARRATIVE: CASE EVENT DATE: 20220122
